FAERS Safety Report 14980002 (Version 1)
Quarter: 2018Q2

REPORT INFORMATION
  Report Type: Spontaneous
  Country: US (occurrence: US)
  Receive Date: 20180606
  Receipt Date: 20180606
  Transmission Date: 20180711
  Serious: No
  Sender: FDA-Public Use
  Company Number: US-ALLERGAN-1720010US

PATIENT
  Sex: Female

DRUGS (3)
  1. CRINONE [Suspect]
     Active Substance: PROGESTERONE
     Indication: IN VITRO FERTILISATION
     Dosage: UNK
     Route: 067
     Dates: start: 201605, end: 20170526
  2. BABY ASPIRIN [Concomitant]
     Active Substance: ASPIRIN
     Route: 048
  3. ESTRACE [Concomitant]
     Active Substance: ESTRADIOL
     Route: 048

REACTIONS (1)
  - Multiple use of single-use product [Unknown]
